FAERS Safety Report 7093075-5 (Version None)
Quarter: 2010Q4

REPORT INFORMATION
  Report Type: 
  Country: None (occurrence: None)
  Receive Date: 20101110
  Receipt Date: 20101029
  Transmission Date: 20110411
  Serious: Yes (Other)
  Sender: FDA-Public Use
  Company Number: DE-ELI_LILLY_AND_COMPANY-DE201011000116

PATIENT
  Age: 49 Year
  Sex: Male
  Weight: 88 kg

DRUGS (4)
  1. BYETTA [Suspect]
     Indication: TYPE 2 DIABETES MELLITUS
     Dosage: 5 UG, 2/D
     Route: 058
     Dates: start: 20090901
  2. BYETTA [Suspect]
     Dosage: 10 UG, DAILY (1/D)
  3. BYETTA [Suspect]
     Dosage: 5 UG, 2/D
     Route: 058
  4. METFORMIN [Concomitant]
     Indication: TYPE 2 DIABETES MELLITUS
     Dosage: 2000 MG, DAILY (1/D)
     Route: 048
     Dates: start: 20070101

REACTIONS (1)
  - PANCREATIC CARCINOMA [None]
